FAERS Safety Report 4315907-3 (Version None)
Quarter: 2004Q1

REPORT INFORMATION
  Report Type: 
  Country: None (occurrence: None)
  Receive Date: 20040310
  Receipt Date: 20040224
  Transmission Date: 20041129
  Serious: Yes (Other)
  Sender: FDA-Public Use
  Company Number: AU-JNJFOC-20040300226

PATIENT
  Age: 50 Year
  Sex: Female

DRUGS (6)
  1. TRAMADOL HCL [Suspect]
     Dosage: 100 MG, 1 IN 1 DAY, ORAL
     Route: 048
     Dates: start: 20030611, end: 20030611
  2. ZOLOFT [Suspect]
     Dosage: 200 MG, IN 1 DAY, ORAL
     Route: 048
     Dates: end: 20030612
  3. AVAPRO [Concomitant]
  4. VOLTAREN [Concomitant]
  5. PANADOL (PARACETAMOL) [Concomitant]
  6. FLUCLOXACILLIN (FLUCLOXACILLIN) [Concomitant]

REACTIONS (5)
  - CHEST PAIN [None]
  - DRUG INTERACTION [None]
  - DYSPHAGIA [None]
  - SEROTONIN SYNDROME [None]
  - URINARY RETENTION [None]
